FAERS Safety Report 9016670 (Version 3)
Quarter: 2013Q1

REPORT INFORMATION
  Report Type: Spontaneous
  Country: AU (occurrence: AU)
  Receive Date: 20130117
  Receipt Date: 20130306
  Transmission Date: 20140127
  Serious: Yes (Disabling)
  Sender: FDA-Public Use
  Company Number: AU-009507513-1301AUS003639

PATIENT
  Age: 78 Year
  Sex: Female
  Weight: 60 kg

DRUGS (5)
  1. SINEMET [Suspect]
     Dosage: 10 DF, QD
     Route: 048
  2. AVANZA SOLTAB [Concomitant]
     Dosage: TOTAL DAILY DOSE: 1 NIGHT
     Route: 048
     Dates: start: 2012
  3. SIFROL [Concomitant]
     Indication: TREMOR
     Dosage: 5 DAILY
     Route: 048
     Dates: start: 2012
  4. TEMAZEPAM [Concomitant]
     Indication: SLEEP DISORDER
     Dosage: TOTAL DAILY DOSE: 1-3 AT NIGHT
     Route: 048
     Dates: start: 2012
  5. AZILECT [Concomitant]
     Indication: TREMOR
     Dosage: 1 DAILY
     Route: 048
     Dates: start: 201210

REACTIONS (6)
  - Nocturia [Unknown]
  - Chromaturia [Unknown]
  - Haematuria [Unknown]
  - Urinary incontinence [Unknown]
  - Pollakiuria [Unknown]
  - Urinary tract infection [Unknown]
